FAERS Safety Report 8812333 (Version 1)
Quarter: 2012Q4

REPORT INFORMATION
  Report Type: 
  Country: US (occurrence: US)
  Receive Date: 20120927
  Receipt Date: 20120927
  Transmission Date: 20130627
  Serious: No
  Sender: FDA-Public Use
  Company Number: US-PFIZER INC-A102124

PATIENT
  Age: 78 Year
  Sex: Male
  Weight: 83.9 kg

DRUGS (15)
  1. VIAGRA [Suspect]
     Indication: ERECTILE DYSFUNCTION
     Dosage: UNK
     Route: 048
  2. CIALIS [Suspect]
     Indication: ERECTILE DYSFUNCTION
     Dosage: UNK
  3. ACETYLSALICYLIC ACID [Concomitant]
     Indication: BACK PAIN
     Dosage: 325 mg,daily
  4. TYLENOL [Concomitant]
     Indication: BACK PAIN
     Dosage: 600 mg,daily
  5. OXYBUTYNIN [Concomitant]
     Indication: DYSURIA
     Dosage: 5 mg, 3x/day
  6. JANUVIA [Concomitant]
     Dosage: 100 mg,daily
  7. INSULIN GLARGINE [Concomitant]
     Dosage: 25 IU,daily
  8. ASCORBIC ACID/IRON [Concomitant]
     Dosage: 150 mg, 2x/day
  9. DIGOXIN [Concomitant]
     Dosage: 0.25 mg,daily
     Route: 048
  10. NABUMETONE [Concomitant]
     Dosage: 500 mg, 2x/day
     Route: 048
  11. RAMIPRIL [Concomitant]
     Dosage: 2.5 mg,daily
  12. METOPROLOL SUCCINATE [Concomitant]
     Dosage: 25 mg,daily
     Route: 048
  13. VERAPAMIL HYDROCHLORIDE [Concomitant]
     Dosage: 180 mg, daily
     Route: 048
  14. GABAPENTIN [Concomitant]
     Dosage: 300 mg, 2x/day
     Route: 048
  15. NOVOLOG [Concomitant]
     Dosage: 8 IU,daily

REACTIONS (1)
  - Drug ineffective [Unknown]
